FAERS Safety Report 11428681 (Version 3)
Quarter: 2016Q4

REPORT INFORMATION
  Report Type: Report from Study
  Country: BR (occurrence: BR)
  Receive Date: 20150828
  Receipt Date: 20161111
  Transmission Date: 20170206
  Serious: Yes (Death, Hospitalization, Other)
  Sender: FDA-Public Use
  Company Number: PHHY2015BR100201

PATIENT
  Sex: Female
  Weight: 50 kg

DRUGS (9)
  1. CALTREN [Concomitant]
     Active Substance: NITRENDIPINE
     Indication: HYPERTENSION
     Dosage: 1 DF, QD (STARTED 8 YEARS AGO AND STOPPED 3 MONTHS AGO)
     Route: 048
  2. INSULIN [Concomitant]
     Active Substance: INSULIN NOS
     Indication: DIABETES MELLITUS
     Dosage: 10 U, BID STARTED 46 YEARS AGO AND STOPPED 3 MONTHS AGO
     Route: 065
  3. DIOVAN HCT [Suspect]
     Active Substance: HYDROCHLOROTHIAZIDE\VALSARTAN
     Indication: HYPERTENSION
     Dosage: 1 DF (VALSARTAN 160 MG, HYDROCHLORTHIAZIDE 12.5MG), QD
     Route: 048
  4. QUETIAPINA [Suspect]
     Active Substance: QUETIAPINE
     Indication: INSOMNIA
     Dosage: 1 DF, QD (25 MG)
     Route: 048
     Dates: start: 20150626
  5. QUETIAPINA [Suspect]
     Active Substance: QUETIAPINE
     Indication: DEMENTIA
     Dosage: 3 DF, QD (25 MG)
     Route: 048
  6. RISPERIDONA [Suspect]
     Active Substance: RISPERIDONE
     Indication: MALAISE
     Dosage: 2 DF, QD
     Route: 065
     Dates: start: 201506
  7. AVALOX [Suspect]
     Active Substance: MOXIFLOXACIN HYDROCHLORIDE
     Indication: PNEUMONIA
     Dosage: 400 MG, UNK
     Route: 065
  8. SELOZOK [Concomitant]
     Active Substance: METOPROLOL SUCCINATE
     Indication: HYPERTENSION
     Dosage: 1 DF, QD (STARTED 10 YEARS AGO AND STOPPED 3  MONTHS AGO)
     Route: 048
  9. EXELON PATCH [Suspect]
     Active Substance: RIVASTIGMINE
     Indication: DEMENTIA
     Dosage: 4.6 MG, QD (5 CM2 PATCH)
     Route: 062
     Dates: start: 201507

REACTIONS (10)
  - Loss of consciousness [Fatal]
  - Pneumonia [Recovered/Resolved]
  - Aspiration [Unknown]
  - Somnolence [Unknown]
  - Concomitant disease aggravated [Fatal]
  - Diabetes mellitus [Fatal]
  - Coma [Fatal]
  - Delirium [Unknown]
  - Pain in extremity [Unknown]
  - Dementia [Fatal]
